FAERS Safety Report 7832333-0 (Version None)
Quarter: 2011Q4

REPORT INFORMATION
  Report Type: 
  Country: None (occurrence: None)
  Receive Date: 20111022
  Receipt Date: 20111018
  Transmission Date: 20120403
  Serious: Yes (Death, Life-Threatening, Hospitalization)
  Sender: FDA-Public Use
  Company Number: JP-BAYER-201011122BYL

PATIENT
  Age: 68 Year
  Sex: Male
  Weight: 64 kg

DRUGS (18)
  1. NEXAVAR [Suspect]
     Dosage: 400 MG (DAILY DOSE), , ORAL
     Route: 048
     Dates: start: 20091112, end: 20091114
  2. NEXAVAR [Suspect]
     Dosage: DAILY DOSE 400 MG
     Route: 048
     Dates: start: 20091117, end: 20091201
  3. CEFAZOLIN SODIUM [Concomitant]
     Indication: DISBACTERIOSIS
     Dosage: SINCE BEFORE ADMINISTRATION
     Route: 048
     Dates: end: 20091201
  4. URSO 250 [Concomitant]
     Dosage: 100 MG, TID
     Route: 048
     Dates: end: 20091017
  5. ALLOPURINOL [Concomitant]
     Dosage: 100 MG, QD
     Route: 048
     Dates: end: 20091017
  6. NEXAVAR [Suspect]
     Dosage: DAILY DOSE 400 MG
     Route: 048
     Dates: start: 20091005, end: 20091017
  7. POVIDONE IODINE [Concomitant]
     Indication: DENTAL DISORDER PROPHYLAXIS
     Dosage: SINCE BEFORE ADMINISTRATION
     Route: 049
  8. TAKEPRON [Concomitant]
     Indication: GASTRITIS PROPHYLAXIS
     Dosage: 15 MG, QD
     Route: 048
     Dates: end: 20091201
  9. ASPARTATE POTASSIUM [Concomitant]
     Dosage: SINCE BEFORE ADMINISTRATION
     Route: 048
     Dates: end: 20091017
  10. LENDORMIN [Concomitant]
     Dosage: 0.25 MG, QD
     Route: 048
  11. NEXAVAR [Suspect]
     Indication: HEPATIC NEOPLASM MALIGNANT
     Dosage: 400 MG, BID
     Route: 048
     Dates: start: 20090723, end: 20090903
  12. AMLODIPINE [Concomitant]
     Dosage: 10 MG, QD
     Route: 048
     Dates: end: 20091017
  13. CANDESARTAN CILEXETIL [Concomitant]
     Dosage: 8 MG, QD
     Route: 048
     Dates: start: 20091017, end: 20091017
  14. TAKA-DIASTASE [Concomitant]
     Indication: GASTRITIS PROPHYLAXIS
     Dosage: 1.3 G, TID
     Route: 048
     Dates: end: 20091201
  15. UREPEARL [Concomitant]
     Indication: PROPHYLAXIS
     Route: 061
     Dates: start: 20090722
  16. HIRUDOID [Concomitant]
     Indication: PROPHYLAXIS
     Route: 061
     Dates: start: 20090723
  17. CANDESARTAN CILEXETIL [Concomitant]
     Dosage: SINCE BEFORE ADMINISTRATION
     Route: 048
     Dates: end: 20091201
  18. PATANOL [Concomitant]
     Dosage: UNK
     Route: 047

REACTIONS (14)
  - HEPATIC NEOPLASM MALIGNANT [None]
  - PYREXIA [None]
  - HYPOPROTHROMBINAEMIA [None]
  - DIARRHOEA [None]
  - RENAL DISORDER [None]
  - ASCITES [None]
  - HYPOALBUMINAEMIA [None]
  - HEPATORENAL SYNDROME [None]
  - JAUNDICE [None]
  - ABDOMINAL PAIN [None]
  - GASTROINTESTINAL HAEMORRHAGE [None]
  - NAUSEA [None]
  - HYPERTENSION [None]
  - HEPATIC FUNCTION ABNORMAL [None]
